FAERS Safety Report 25575731 (Version 1)
Quarter: 2025Q3

REPORT INFORMATION
  Report Type: Report from Study
  Country: US (occurrence: US)
  Receive Date: 20250718
  Receipt Date: 20250718
  Transmission Date: 20251020
  Serious: No
  Sender: SUNOVION
  Company Number: US-SUMITOMO PHARMA SWITZERLAND GMBH-2024SPA002319

PATIENT

DRUGS (12)
  1. ORGOVYX [Suspect]
     Active Substance: RELUGOLIX
     Indication: Prostate cancer
     Dosage: 360 MG, SINGLE
     Route: 048
     Dates: start: 20240518
  2. ORGOVYX [Suspect]
     Active Substance: RELUGOLIX
     Dosage: 120 MG, QD
     Route: 048
     Dates: start: 20240519
  3. ABIRATERONE ACETATE [Suspect]
     Active Substance: ABIRATERONE ACETATE
     Route: 065
  4. CALCIUM [Concomitant]
     Active Substance: CALCIUM
     Route: 065
  5. TAMSULOSIN [Concomitant]
     Active Substance: TAMSULOSIN
     Route: 065
  6. VITAMIN B12 [Concomitant]
     Active Substance: CYANOCOBALAMIN
  7. VITAMIN D3 [Concomitant]
     Active Substance: CHOLECALCIFEROL
     Route: 065
  8. FAMOTIDINE [Concomitant]
     Active Substance: FAMOTIDINE
     Route: 065
  9. MOTRIN IB [Concomitant]
     Active Substance: IBUPROFEN
     Route: 065
  10. ROSUVASTATIN [Concomitant]
     Active Substance: ROSUVASTATIN
     Route: 065
  11. PREDNISONE [Concomitant]
     Active Substance: PREDNISONE
     Route: 065
  12. EFFEXOR [Concomitant]
     Active Substance: VENLAFAXINE HYDROCHLORIDE
     Route: 065

REACTIONS (4)
  - Radiation prostatitis [Unknown]
  - Hepatic enzyme increased [Unknown]
  - Contusion [Unknown]
  - Fatigue [Unknown]
